FAERS Safety Report 7250230-9 (Version None)
Quarter: 2011Q1

REPORT INFORMATION
  Report Type: 
  Country: None (occurrence: None)
  Receive Date: 20110128
  Receipt Date: 20110113
  Transmission Date: 20110831
  Serious: Yes (Hospitalization)
  Sender: FDA-Public Use
  Company Number: JP-BAYER-201014746BYL

PATIENT
  Age: 63 Year
  Sex: Male
  Weight: 66 kg

DRUGS (9)
  1. AMINOLEBAN [Concomitant]
     Indication: HYPERAMMONAEMIA
     Route: 048
     Dates: start: 20080215
  2. UREA [Concomitant]
     Indication: PROPHYLAXIS
     Route: 065
     Dates: start: 20100814
  3. SORAFENIB (RAF KINASE INHIBITOR) [Suspect]
     Indication: HEPATIC NEOPLASM MALIGNANT
     Dosage: 400 MG, BID
     Route: 048
     Dates: start: 20100814, end: 20100907
  4. URSODEOXYCHOLIC ACID [Concomitant]
     Indication: PROPHYLAXIS
     Route: 065
     Dates: start: 20051027
  5. UNCODEABLE ^INVESTIGATIONAL DRUG^ [Suspect]
     Indication: HEPATIC NEOPLASM MALIGNANT
  6. FAMOTIDINE [Concomitant]
     Indication: GASTRITIS
     Route: 065
     Dates: start: 20080913
  7. BASEN [Concomitant]
     Indication: DIABETES MELLITUS
     Route: 048
     Dates: start: 20080913
  8. SORAFENIB (RAF KINASE INHIBITOR) [Suspect]
     Dosage: 400 MG, BID
     Route: 048
     Dates: start: 20100925
  9. LACTITOL [Concomitant]
     Indication: HYPERAMMONAEMIA
     Route: 048
     Dates: start: 20080215

REACTIONS (1)
  - HEPATIC ENCEPHALOPATHY [None]
